FAERS Safety Report 16581700 (Version 2)
Quarter: 2019Q3

REPORT INFORMATION
  Report Type: Spontaneous
  Country: US (occurrence: US)
  Receive Date: 20190716
  Receipt Date: 20190828
  Transmission Date: 20191004
  Serious: No
  Sender: FDA-Public Use
  Company Number: US-ASTRAZENECA-2019SE89688

PATIENT
  Age: 517 Month
  Sex: Female
  Weight: 119.7 kg

DRUGS (1)
  1. BYDUREON [Suspect]
     Active Substance: EXENATIDE
     Indication: TYPE 2 DIABETES MELLITUS
     Route: 058
     Dates: start: 201901

REACTIONS (5)
  - Incorrect dose administered by device [Unknown]
  - Blood glucose increased [Unknown]
  - Wrong technique in device usage process [Unknown]
  - Intentional device misuse [Unknown]
  - Device issue [Unknown]

NARRATIVE: CASE EVENT DATE: 201906
